FAERS Safety Report 6593890-8 (Version None)
Quarter: 2010Q1

REPORT INFORMATION
  Report Type: 
  Country: None (occurrence: None)
  Receive Date: 20100222
  Receipt Date: 20100210
  Transmission Date: 20100710
  Serious: Yes (Hospitalization, Other)
  Sender: FDA-Public Use
  Company Number: US-PFIZER INC-2010018694

PATIENT
  Sex: Female

DRUGS (3)
  1. ZYVOX [Suspect]
     Dosage: UNK
  2. IMIPENEM [Concomitant]
  3. VANCOMYCIN [Concomitant]

REACTIONS (10)
  - BLOOD CREATININE ABNORMAL [None]
  - CYANOSIS [None]
  - HYPERNATRAEMIA [None]
  - ILL-DEFINED DISORDER [None]
  - MOUTH ULCERATION [None]
  - PNEUMONIA [None]
  - SINUSITIS [None]
  - THROMBOCYTOPENIA [None]
  - UNRESPONSIVE TO STIMULI [None]
  - URINARY TRACT INFECTION [None]
